FAERS Safety Report 7468679-8 (Version None)
Quarter: 2011Q2

REPORT INFORMATION
  Report Type: 
  Country: None (occurrence: None)
  Receive Date: 20110510
  Receipt Date: 20090720
  Transmission Date: 20111010
  Serious: No
  Sender: FDA-Public Use
  Company Number: US-BIOGENIDEC-2009BI022855

PATIENT
  Sex: Male

DRUGS (3)
  1. AVONEX [Concomitant]
     Indication: MULTIPLE SCLEROSIS
     Route: 030
     Dates: start: 20070612
  2. TYSABRI [Suspect]
     Indication: MULTIPLE SCLEROSIS
     Route: 042
     Dates: start: 20081023, end: 20091103
  3. TYSABRI [Suspect]
     Route: 042
     Dates: start: 20110125

REACTIONS (7)
  - BALANCE DISORDER [None]
  - ASTHENIA [None]
  - SLEEP DISORDER [None]
  - NASOPHARYNGITIS [None]
  - COGNITIVE DISORDER [None]
  - MEMORY IMPAIRMENT [None]
  - REPETITIVE SPEECH [None]
